FAERS Safety Report 10189006 (Version 2)
Quarter: 2014Q3

REPORT INFORMATION
  Report Type: Spontaneous
  Country: IT (occurrence: IT)
  Receive Date: 20140522
  Receipt Date: 20140731
  Transmission Date: 20150326
  Serious: Yes (Hospitalization)
  Sender: FDA-Public Use
  Company Number: IT-TEVA-481972ISR

PATIENT
  Age: 82 Year
  Sex: Female

DRUGS (7)
  1. CARDICOR - 1.25 MG COMPRESSE - RECORDATI INDUSTRIA CHIMICA [Suspect]
     Active Substance: BISOPROLOL FUMARATE
     Indication: PRODUCT USED FOR UNKNOWN INDICATION
     Dosage: 1 DF TOTAL
     Route: 048
     Dates: start: 20140404, end: 20140404
  2. PLAVIX [Suspect]
     Active Substance: CLOPIDOGREL BISULFATE
     Indication: PRODUCT USED FOR UNKNOWN INDICATION
     Dosage: 1 DF TOTAL
     Route: 048
     Dates: start: 20140404, end: 20140404
  3. CARBAMAZEPINE. [Suspect]
     Active Substance: CARBAMAZEPINE
     Indication: PRODUCT USED FOR UNKNOWN INDICATION
     Dosage: 1 DF TOTAL
     Route: 048
     Dates: start: 20140404, end: 20140404
  4. LASIX [Suspect]
     Active Substance: FUROSEMIDE
     Indication: PRODUCT USED FOR UNKNOWN INDICATION
     Dosage: 1 DF TOTAL
     Route: 048
     Dates: start: 20140404, end: 20140404
  5. CARDIOASPIRIN - 100 MG COMPRESSE GASTRORESISTENTI - BAYER S.P.A. [Suspect]
     Active Substance: ASPIRIN
     Indication: PRODUCT USED FOR UNKNOWN INDICATION
     Dosage: 1 DF TOTAL
     Route: 048
     Dates: start: 20140404, end: 20140404
  6. PRITOR - 40 MG COMPRESSE - BAYER PHARMA AG [Suspect]
     Active Substance: TELMISARTAN
     Indication: PRODUCT USED FOR UNKNOWN INDICATION
     Dosage: 1 DF TOTAL
     Route: 048
     Dates: start: 20140404, end: 20140404
  7. PANTOPRAZOLE [Suspect]
     Active Substance: PANTOPRAZOLE SODIUM
     Indication: PRODUCT USED FOR UNKNOWN INDICATION
     Dosage: 1 DF TOTAL
     Route: 048
     Dates: start: 20140404, end: 20140404

REACTIONS (3)
  - Syncope [Recovered/Resolved]
  - Medication error [Recovered/Resolved]
  - Vomiting [Recovered/Resolved]

NARRATIVE: CASE EVENT DATE: 20140404
